FAERS Safety Report 5768567-9 (Version None)
Quarter: 2008Q2

REPORT INFORMATION
  Report Type: 
  Country: None (occurrence: None)
  Receive Date: 20080610
  Receipt Date: 20080528
  Transmission Date: 20081010
  Serious: Yes (Death)
  Sender: FDA-Public Use
  Company Number: US016126

PATIENT
  Age: 84 Year
  Sex: Female

DRUGS (9)
  1. TRISENOX [Suspect]
     Indication: ACUTE PROMYELOCYTIC LEUKAEMIA
     Dosage: 14 MG ONCE INTRAVENOUS DRIP
     Route: 041
     Dates: start: 20050324, end: 20050324
  2. TRISENOX [Suspect]
     Indication: HAEMATOLOGICAL MALIGNANCY
     Dosage: 14 MG ONCE INTRAVENOUS DRIP
     Route: 041
     Dates: start: 20050324, end: 20050324
  3. CIPRO [Suspect]
     Indication: UPPER RESPIRATORY TRACT INFECTION
     Dosage: 500 MG BID
  4. ATENOLOL [Concomitant]
  5. LORAZEPAM [Concomitant]
  6. DOCUSATE SODIUM [Concomitant]
  7. FUROSEMIDE [Concomitant]
  8. POTASSIUM CHLORIDE [Concomitant]
  9. MAGNESIUM OXIDE [Concomitant]

REACTIONS (20)
  - ALANINE AMINOTRANSFERASE INCREASED [None]
  - ARRHYTHMIA [None]
  - ASPARTATE AMINOTRANSFERASE INCREASED [None]
  - ATRIAL FIBRILLATION [None]
  - BLOOD LACTIC ACID INCREASED [None]
  - BLOOD POTASSIUM INCREASED [None]
  - CARDIOTOXICITY [None]
  - ELECTROCARDIOGRAM QT PROLONGED [None]
  - ELECTROCARDIOGRAM ST SEGMENT ELEVATION [None]
  - FLUID OVERLOAD [None]
  - HAEMODIALYSIS [None]
  - HYPOPERFUSION [None]
  - NO THERAPEUTIC RESPONSE [None]
  - PULSE ABSENT [None]
  - REFUSAL OF TREATMENT BY RELATIVE [None]
  - RENAL FAILURE ACUTE [None]
  - SEPSIS [None]
  - UNRESPONSIVE TO STIMULI [None]
  - UPPER GASTROINTESTINAL HAEMORRHAGE [None]
  - VOMITING [None]
